FAERS Safety Report 14166632 (Version 2)
Quarter: 2017Q4

REPORT INFORMATION
  Report Type: Spontaneous
  Country: US (occurrence: US)
  Receive Date: 20171107
  Receipt Date: 20171107
  Transmission Date: 20180321
  Serious: No
  Sender: FDA-Public Use
  Company Number: US-BAYER-2017-199661

PATIENT
  Age: 3 Year
  Sex: Female
  Weight: 14.51 kg

DRUGS (2)
  1. CLARITIN [Suspect]
     Active Substance: LORATADINE
     Dosage: (HALF A TABLET DAILY AFTER DINNER)
     Route: 048
     Dates: start: 201709
  2. ACETOPHEN [PARACETAMOL] [Concomitant]
     Dosage: UNK

REACTIONS (3)
  - Drug administration error [Not Recovered/Not Resolved]
  - Product use in unapproved indication [Not Recovered/Not Resolved]
  - Off label use [Unknown]

NARRATIVE: CASE EVENT DATE: 201709
